FAERS Safety Report 23653178 (Version 3)
Quarter: 2024Q2

REPORT INFORMATION
  Report Type: Spontaneous
  Country: US (occurrence: US)
  Receive Date: 20240320
  Receipt Date: 20240423
  Transmission Date: 20240716
  Serious: Yes (Other)
  Sender: FDA-Public Use
  Company Number: US-PFIZER INC-202400049934

PATIENT
  Age: 64 Year
  Sex: Male
  Weight: 95.238 kg

DRUGS (1)
  1. EUCRISA [Suspect]
     Active Substance: CRISABOROLE
     Indication: Rash
     Dosage: APPLY TO THE RASH ON THE GROIN TWICE A DAY
     Route: 061

REACTIONS (2)
  - Glaucoma [Unknown]
  - Off label use [Unknown]
